FAERS Safety Report 21894508 (Version 1)
Quarter: 2023Q1

REPORT INFORMATION
  Report Type: Spontaneous
  Country: US (occurrence: US)
  Receive Date: 20230121
  Receipt Date: 20230121
  Transmission Date: 20230418
  Serious: No
  Sender: FDA-Public Use
  Company Number: US-drreddys-SPO/USA/22/0158345

PATIENT
  Age: 84 Year
  Sex: Female

DRUGS (18)
  1. LENALIDOMIDE [Suspect]
     Active Substance: LENALIDOMIDE
     Indication: Irritable bowel syndrome
  2. Dicyclomine Hydrochloride CAP 10MG [Concomitant]
     Indication: Product used for unknown indication
  3. METFORMIN HC TAB 1000MG [Concomitant]
     Indication: Product used for unknown indication
  4. Metoprolol Succinate TB2 50MG [Concomitant]
     Indication: Product used for unknown indication
  5. ACETAMINOPHE TAB 500MG [Concomitant]
     Indication: Product used for unknown indication
  6. AMITRIPTYLIN TAB 50MG [Concomitant]
     Indication: Product used for unknown indication
  7. ASPIRIN 81 CHE 81MG [Concomitant]
     Indication: Product used for unknown indication
  8. BUSPIRONE HC TAB 5MG [Concomitant]
     Indication: Product used for unknown indication
  9. CLOBETASOL P OIN 0.05 [Concomitant]
     Indication: Product used for unknown indication
  10. DICLOFENAC S GEL 1 [Concomitant]
     Indication: Product used for unknown indication
  11. ESCITALOPRAM TAB 20MG [Concomitant]
     Indication: Product used for unknown indication
  12. EZETIMIBE [Concomitant]
     Active Substance: EZETIMIBE
     Indication: Product used for unknown indication
  13. GLIPIZIDE [Concomitant]
     Active Substance: GLIPIZIDE
     Indication: Product used for unknown indication
  14. HYDROCHLOROT TAB 25MG [Concomitant]
     Indication: Product used for unknown indication
  15. JANUVIA T B 100MG [Concomitant]
     Indication: Product used for unknown indication
  16. LISINOPRIL [Concomitant]
     Active Substance: LISINOPRIL
     Indication: Product used for unknown indication
  17. WELCHOL TAB 625MG [Concomitant]
     Indication: Product used for unknown indication
  18. ZEGERID CAP 40-1100MG [Concomitant]
     Indication: Product used for unknown indication

REACTIONS (2)
  - COVID-19 [Not Recovered/Not Resolved]
  - Product use in unapproved indication [Unknown]

NARRATIVE: CASE EVENT DATE: 20221022
